FAERS Safety Report 8007024-6 (Version None)
Quarter: 2011Q4

REPORT INFORMATION
  Report Type: 
  Country: None (occurrence: None)
  Receive Date: 20111227
  Receipt Date: 20111219
  Transmission Date: 20120403
  Serious: Yes (Hospitalization)
  Sender: FDA-Public Use
  Company Number: FR-BRISTOL-MYERS SQUIBB COMPANY-16307779

PATIENT
  Age: 79 Year
  Sex: Female

DRUGS (5)
  1. GALANTAMINE HYDROBROMIDE [Concomitant]
  2. NEXIUM [Concomitant]
  3. COUMADIN [Suspect]
     Indication: ARRHYTHMIA
     Route: 048
  4. DIGOXIN [Concomitant]
  5. ACETAMINOPHEN [Concomitant]

REACTIONS (4)
  - UNDERDOSE [None]
  - HEMIPARESIS [None]
  - APHASIA [None]
  - ISCHAEMIC STROKE [None]
